FAERS Safety Report 16612758 (Version 1)
Quarter: 2019Q3

REPORT INFORMATION
  Report Type: Spontaneous
  Country: US (occurrence: US)
  Receive Date: 20190722
  Receipt Date: 20190722
  Transmission Date: 20191004
  Serious: Yes (Other)
  Sender: FDA-Public Use
  Company Number: None

PATIENT
  Age: 29 Year
  Sex: Female
  Weight: 83.25 kg

DRUGS (6)
  1. ORTHO-K THICK (NIGHT) [Suspect]
     Active Substance: HOMEOPATHICS
     Indication: CONTACT LENS THERAPY
     Route: 047
     Dates: start: 20190326, end: 20190606
  2. FISH OIL [Concomitant]
     Active Substance: FISH OIL
  3. KYLEENA [Concomitant]
     Active Substance: LEVONORGESTREL
  4. XYZAL [Concomitant]
     Active Substance: LEVOCETIRIZINE DIHYDROCHLORIDE
  5. PAZEO [Concomitant]
     Active Substance: OLOPATADINE HYDROCHLORIDE
  6. FLONASE [Concomitant]
     Active Substance: FLUTICASONE PROPIONATE

REACTIONS (5)
  - Foreign body sensation in eyes [None]
  - Conjunctival laceration [None]
  - Conjunctival disorder [None]
  - Dry eye [None]
  - Punctate keratitis [None]

NARRATIVE: CASE EVENT DATE: 20190531
